FAERS Safety Report 5743540-5 (Version None)
Quarter: 2008Q2

REPORT INFORMATION
  Report Type: 
  Country: None (occurrence: None)
  Receive Date: 20080516
  Receipt Date: 20080501
  Transmission Date: 20081010
  Serious: Yes (Other)
  Sender: FDA-Public Use
  Company Number: 2008AL003738

PATIENT
  Age: 71 Year
  Sex: Male

DRUGS (16)
  1. METFORMIN HYDROCHLORIDE [Suspect]
     Indication: DRUG USE FOR UNKNOWN INDICATION
     Dosage: 850 MG, TID;
     Dates: start: 20080412
  2. ACTOS [Concomitant]
  3. INSULIN [Concomitant]
  4. LISINOPRIL [Concomitant]
  5. ESOMEPRAZOLE [Concomitant]
  6. ATORVASTATIN CALCIUM [Concomitant]
  7. ACETYLSALICYLIC ACID SRT [Concomitant]
  8. ALBUTEROL [Concomitant]
  9. BECLOMETHASONE DIPROPIONATE [Concomitant]
  10. SILDENAFIL CITRATE [Concomitant]
  11. CLEXANE [Concomitant]
  12. CEFTRIAXONE [Concomitant]
  13. METRONIDAZOLE HCL [Concomitant]
  14. AMIODARONE HCL [Concomitant]
  15. FUROSEMIDE [Concomitant]
  16. IV FLUIDS [Concomitant]

REACTIONS (3)
  - LOCAL SWELLING [None]
  - OEDEMA PERIPHERAL [None]
  - PITTING OEDEMA [None]
